FAERS Safety Report 4689054-5 (Version None)
Quarter: 2005Q2

REPORT INFORMATION
  Report Type: 
  Country: None (occurrence: None)
  Receive Date: 20050608
  Receipt Date: 20050328
  Transmission Date: 20051028
  Serious: No
  Sender: FDA-Public Use
  Company Number: 2005-BP-05155BP

PATIENT
  Sex: Female

DRUGS (4)
  1. SPIRIVA [Suspect]
     Indication: CHRONIC OBSTRUCTIVE PULMONARY DISEASE
     Dosage: 18 MCG (18 MCG, QD), IH
     Route: 055
     Dates: start: 20050125, end: 20050327
  2. SPIRIVA [Suspect]
  3. THEOPHYLLINE-SR [Concomitant]
  4. ASPIRIN [Concomitant]

REACTIONS (3)
  - EYELID MARGIN CRUSTING [None]
  - LACRIMATION INCREASED [None]
  - OCULAR HYPERAEMIA [None]
